FAERS Safety Report 8248137-3 (Version None)
Quarter: 2012Q1

REPORT INFORMATION
  Report Type: 
  Country: None (occurrence: None)
  Receive Date: 20120330
  Receipt Date: 20120322
  Transmission Date: 20120608
  Serious: Yes (Hospitalization)
  Sender: FDA-Public Use
  Company Number: US-BAYER-2012-028765

PATIENT
  Age: 51 Year
  Sex: Female
  Weight: 54 kg

DRUGS (5)
  1. FLUCONAZOLE [Concomitant]
  2. CLONAZEPAM [Concomitant]
  3. YAZ [Suspect]
     Dosage: UNK
     Dates: start: 20090105, end: 20090917
  4. PIROXICAM [Concomitant]
  5. VITAMIN E [Concomitant]

REACTIONS (4)
  - DEEP VEIN THROMBOSIS [None]
  - PLEURAL EFFUSION [None]
  - ATELECTASIS [None]
  - PULMONARY EMBOLISM [None]
